APPROVED DRUG PRODUCT: DEXAMETHASONE
Active Ingredient: DEXAMETHASONE
Strength: 1.5MG
Dosage Form/Route: TABLET;ORAL
Application: A215604 | Product #001 | TE Code: AB
Applicant: NOVITIUM PHARMA LLC
Approved: Aug 8, 2022 | RLD: No | RS: No | Type: RX